FAERS Safety Report 8611213-7 (Version None)
Quarter: 2012Q3

REPORT INFORMATION
  Report Type: 
  Country: None (occurrence: None)
  Receive Date: 20120822
  Receipt Date: 20120813
  Transmission Date: 20120928
  Serious: Yes (Other)
  Sender: FDA-Public Use
  Company Number: US-ASTRAZENECA-2012SE57229

PATIENT
  Age: 81 Year
  Sex: Male

DRUGS (2)
  1. DIFFERENT MEDICATIONS [Concomitant]
  2. ZOLADEX [Suspect]
     Route: 058

REACTIONS (2)
  - PROSTATE CANCER [None]
  - HYPERTENSION [None]
